FAERS Safety Report 18564027 (Version 2)
Quarter: 2021Q1

REPORT INFORMATION
  Report Type: Report from Study
  Country: PL (occurrence: PL)
  Receive Date: 20201201
  Receipt Date: 20210129
  Transmission Date: 20210419
  Serious: Yes (Death)
  Sender: FDA-Public Use
  Company Number: PL-REGENERON PHARMACEUTICALS, INC.-2020-91562

PATIENT

DRUGS (14)
  1. EYLEA [Suspect]
     Active Substance: AFLIBERCEPT
     Dosage: UNK, RIGHT EYE 2.0
     Route: 031
     Dates: start: 20180108
  2. EYLEA [Suspect]
     Active Substance: AFLIBERCEPT
     Dosage: 2 UNK RIGHT EYE
     Route: 031
     Dates: start: 20190704
  3. EYLEA [Suspect]
     Active Substance: AFLIBERCEPT
     Dosage: 2 UNK, RIGHT EYE
     Route: 031
     Dates: start: 20180625
  4. LUCENTIS [Concomitant]
     Active Substance: RANIBIZUMAB
     Indication: PRODUCT USED FOR UNKNOWN INDICATION
     Dosage: UNK
  5. EYLEA [Suspect]
     Active Substance: AFLIBERCEPT
     Dosage: UNK, RIGHT EYE 2.0 MG
     Route: 031
     Dates: start: 20171107
  6. EYLEA [Suspect]
     Active Substance: AFLIBERCEPT
     Dosage: 2 UNK, RIGHT EYE
     Route: 031
     Dates: start: 20180430
  7. EYLEA [Suspect]
     Active Substance: AFLIBERCEPT
     Dosage: 2 UNK, RIGHT EYE
     Route: 031
     Dates: start: 20190311
  8. EYLEA [Suspect]
     Active Substance: AFLIBERCEPT
     Dosage: 2 UNK, RIGHT EYE
     Route: 031
     Dates: start: 20190527
  9. EYLEA [Suspect]
     Active Substance: AFLIBERCEPT
     Dosage: 2 MG
     Route: 031
     Dates: start: 20190121
  10. EYLEA [Suspect]
     Active Substance: AFLIBERCEPT
     Indication: NEOVASCULAR AGE-RELATED MACULAR DEGENERATION
     Dosage: 2 MG, EQUIVALENT OF 50 ML OF SOLUTION
     Route: 031
     Dates: start: 20171010, end: 20190704
  11. EYLEA [Suspect]
     Active Substance: AFLIBERCEPT
     Dosage: 2 UNK, RIGHT EYE
     Route: 031
     Dates: start: 20180817
  12. EYLEA [Suspect]
     Active Substance: AFLIBERCEPT
     Dosage: UNK, RIGHT EYE 2.0 MG EYLEA
     Route: 031
     Dates: start: 20171010
  13. EYLEA [Suspect]
     Active Substance: AFLIBERCEPT
     Dosage: UNK, RIGHT EYE 2.0
     Route: 031
     Dates: start: 20180305
  14. EYLEA [Suspect]
     Active Substance: AFLIBERCEPT
     Dosage: 2 UNK RIGHT EYE
     Route: 031
     Dates: start: 20181022

REACTIONS (1)
  - Death [Fatal]

NARRATIVE: CASE EVENT DATE: 20201116
